FAERS Safety Report 15867671 (Version 1)
Quarter: 2018Q4

REPORT INFORMATION
  Report Type: Spontaneous
  Country: US (occurrence: US)
  Receive Date: 20181231
  Receipt Date: 20181231
  Transmission Date: 20190205
  Serious: No
  Sender: FDA-Public Use
  Company Number: None

PATIENT
  Age: 56 Year
  Sex: Female

DRUGS (1)
  1. DAPTOMYCIN 500 FRESENIUS KABI USA [Suspect]
     Active Substance: DAPTOMYCIN
     Indication: OSTEOCHONDROSIS
     Route: 042
     Dates: start: 20181203, end: 20181219

REACTIONS (1)
  - Blood creatine phosphokinase increased [None]

NARRATIVE: CASE EVENT DATE: 20181203
